FAERS Safety Report 22088287 (Version 1)
Quarter: 2023Q1

REPORT INFORMATION
  Report Type: Spontaneous
  Country: US (occurrence: US)
  Receive Date: 20230313
  Receipt Date: 20230313
  Transmission Date: 20230418
  Serious: No
  Sender: FDA-Public Use
  Company Number: US-AUROBINDO-AUR-APL-2022-012286

PATIENT
  Sex: Male

DRUGS (2)
  1. REPAGLINIDE [Suspect]
     Active Substance: REPAGLINIDE
     Indication: Product used for unknown indication
     Dosage: 0.5 MILLIGRAM, ONCE A DAY, IN THE MORNING
     Route: 065
  2. REPAGLINIDE [Suspect]
     Active Substance: REPAGLINIDE
     Dosage: 1 MILLIGRAM, ONCE A DAY
     Route: 065

REACTIONS (2)
  - Drug ineffective [Unknown]
  - Extra dose administered [Unknown]
